FAERS Safety Report 23491970 (Version 1)
Quarter: 2024Q1

REPORT INFORMATION
  Report Type: Spontaneous
  Country: FR (occurrence: FR)
  Receive Date: 20240207
  Receipt Date: 20240207
  Transmission Date: 20240409
  Serious: Yes (Hospitalization)
  Sender: FDA-Public Use
  Company Number: None

PATIENT
  Age: 40 Year
  Sex: Female
  Weight: 70 kg

DRUGS (3)
  1. CAPECITABINE [Suspect]
     Active Substance: CAPECITABINE
     Indication: Breast cancer
     Dosage: 6 CP WITH 300 ML VODKA
     Route: 048
     Dates: start: 20231228
  2. CAPECITABINE [Suspect]
     Active Substance: CAPECITABINE
     Indication: Breast cancer
     Dosage: 2 TABLETS A WEEK 3 YEARS AGO
  3. ALCOHOL [Suspect]
     Active Substance: ALCOHOL
     Dates: start: 20231228

REACTIONS (2)
  - Poisoning deliberate [Unknown]
  - Nausea [Unknown]

NARRATIVE: CASE EVENT DATE: 20231228
